FAERS Safety Report 16777595 (Version 1)
Quarter: 2019Q3

REPORT INFORMATION
  Report Type: Report from Study
  Country: None (occurrence: US)
  Receive Date: 20190905
  Receipt Date: 20190905
  Transmission Date: 20191005
  Serious: Yes (Hospitalization)
  Sender: FDA-Public Use
  Company Number: US-ABBVIE-19P-163-2840555-00

PATIENT
  Age: 67 Year
  Sex: Male
  Weight: 101 kg

DRUGS (44)
  1. VENETOCLAX. [Suspect]
     Active Substance: VENETOCLAX
     Route: 048
     Dates: start: 20190801
  2. GA101 [Suspect]
     Active Substance: OBINUTUZUMAB
     Dosage: DAYS 8 AND 15 OF CYCLE 1, AND DAY 1 OF 5 SUBSEQUENT CYCLES (TOTAL OF 6 28-DAY CYCLES)
     Route: 042
     Dates: start: 20181025, end: 20181101
  3. NORMAL SALINE SOLUTION (0.9% SODIUM CHLORIDE) [Concomitant]
     Route: 042
     Dates: start: 20190417, end: 20190417
  4. NORMAL SALINE SOLUTION (0.9% SODIUM CHLORIDE) [Concomitant]
     Route: 042
     Dates: start: 20190429, end: 20190429
  5. NORMAL SALINE SOLUTION (0.9% SODIUM CHLORIDE) [Concomitant]
     Route: 042
     Dates: start: 20190510, end: 20190510
  6. METOPROLOL. [Concomitant]
     Active Substance: METOPROLOL
     Indication: ENDOCARDITIS
     Route: 048
     Dates: start: 20181010
  7. MULTIVITAMIN [Concomitant]
     Active Substance: VITAMINS
     Indication: ROUTINE HEALTH MAINTENANCE
     Route: 048
     Dates: start: 20111109
  8. PRILOSEC [Concomitant]
     Active Substance: OMEPRAZOLE MAGNESIUM
     Indication: GASTROOESOPHAGEAL REFLUX DISEASE
     Route: 048
     Dates: start: 20120324
  9. TESSALON [Concomitant]
     Active Substance: BENZONATATE
     Indication: COUGH
     Route: 048
     Dates: start: 20190510
  10. VENETOCLAX. [Suspect]
     Active Substance: VENETOCLAX
     Route: 048
     Dates: start: 20181227, end: 20190102
  11. VENETOCLAX. [Suspect]
     Active Substance: VENETOCLAX
     Route: 048
     Dates: start: 20190103, end: 20190109
  12. GA101 [Suspect]
     Active Substance: OBINUTUZUMAB
     Indication: CHRONIC LYMPHOCYTIC LEUKAEMIA
     Dosage: CYCLE 1, DAY 1
     Route: 042
     Dates: start: 20181018, end: 20181018
  13. NORMAL SALINE SOLUTION (0.9% SODIUM CHLORIDE) [Concomitant]
     Route: 042
     Dates: start: 20181220, end: 20181220
  14. NORMAL SALINE SOLUTION (0.9% SODIUM CHLORIDE) [Concomitant]
     Route: 042
     Dates: start: 20190322, end: 20190322
  15. NORMAL SALINE SOLUTION (0.9% SODIUM CHLORIDE) [Concomitant]
     Route: 042
     Dates: start: 20190717, end: 20190717
  16. ALLOPURINOL. [Concomitant]
     Active Substance: ALLOPURINOL
     Indication: PROPHYLAXIS
     Route: 048
     Dates: start: 20181017, end: 20181026
  17. ALLOPURINOL. [Concomitant]
     Active Substance: ALLOPURINOL
     Route: 048
     Dates: start: 20181211, end: 20190116
  18. ALLOPURINOL. [Concomitant]
     Active Substance: ALLOPURINOL
     Route: 048
     Dates: start: 20190214
  19. GA101 [Suspect]
     Active Substance: OBINUTUZUMAB
     Route: 042
     Dates: start: 20181115, end: 20190410
  20. NORMAL SALINE SOLUTION (0.9% SODIUM CHLORIDE) [Concomitant]
     Route: 042
     Dates: start: 20190410, end: 20190410
  21. NORMAL SALINE SOLUTION (0.9% SODIUM CHLORIDE) [Concomitant]
     Route: 042
     Dates: start: 20190524, end: 20190524
  22. ALPHA LIPOIC ACID [Concomitant]
     Active Substance: .ALPHA.-LIPOIC ACID
     Indication: ROUTINE HEALTH MAINTENANCE
     Route: 048
     Dates: start: 2015
  23. NORMAL SALINE SOLUTION (0.9% SODIUM CHLORIDE) [Concomitant]
     Route: 042
     Dates: start: 20181214, end: 20181214
  24. NORMAL SALINE SOLUTION (0.9% SODIUM CHLORIDE) [Concomitant]
     Route: 042
     Dates: start: 20190726, end: 20190726
  25. IMIPRAMINE [Concomitant]
     Active Substance: IMIPRAMINE
     Indication: DEPRESSION
     Route: 048
     Dates: start: 1993
  26. VITAMIN D3 [Concomitant]
     Active Substance: CHOLECALCIFEROL
     Indication: ROUTINE HEALTH MAINTENANCE
     Route: 048
     Dates: start: 20120209
  27. VIAGRA [Concomitant]
     Active Substance: SILDENAFIL CITRATE
     Indication: ERECTILE DYSFUNCTION
     Route: 048
     Dates: start: 2005
  28. GA101 [Suspect]
     Active Substance: OBINUTUZUMAB
     Dosage: CYCLE 1, DAY 2
     Route: 042
     Dates: start: 20181019, end: 20181019
  29. NORMAL SALINE SOLUTION (0.9% SODIUM CHLORIDE) [Concomitant]
     Indication: PROPHYLAXIS
     Route: 042
     Dates: start: 20181213, end: 20181213
  30. NORMAL SALINE SOLUTION (0.9% SODIUM CHLORIDE) [Concomitant]
     Route: 042
     Dates: start: 20190315, end: 20190315
  31. XANAX [Concomitant]
     Active Substance: ALPRAZOLAM
     Indication: ANXIETY
     Route: 048
     Dates: start: 2000
  32. FLOMAX [Concomitant]
     Active Substance: TAMSULOSIN HYDROCHLORIDE
     Indication: BENIGN PROSTATIC HYPERPLASIA
     Route: 048
     Dates: start: 2012
  33. NASALCROM [Concomitant]
     Active Substance: CROMOLYN SODIUM
     Indication: HYPERSENSITIVITY
     Dosage: 1 SPRAY
     Route: 045
     Dates: start: 20120524
  34. CIALIS [Concomitant]
     Active Substance: TADALAFIL
     Indication: ERECTILE DYSFUNCTION
     Route: 048
     Dates: start: 2005
  35. VENETOCLAX. [Suspect]
     Active Substance: VENETOCLAX
     Indication: CHRONIC LYMPHOCYTIC LEUKAEMIA
     Dosage: CYCLE 1, DAY 22 START RAMP-UP
     Route: 048
     Dates: start: 20181213, end: 20181219
  36. VENETOCLAX. [Suspect]
     Active Substance: VENETOCLAX
     Route: 048
     Dates: start: 20181220, end: 20181225
  37. NORMAL SALINE SOLUTION (0.9% SODIUM CHLORIDE) [Concomitant]
     Route: 042
     Dates: start: 20190531, end: 20190531
  38. NORMAL SALINE SOLUTION (0.9% SODIUM CHLORIDE) [Concomitant]
     Route: 042
     Dates: start: 20190710, end: 20190710
  39. LISINOPRIL. [Concomitant]
     Active Substance: LISINOPRIL
     Indication: HYPERTENSION
     Route: 048
     Dates: start: 1998
  40. VENETOCLAX. [Suspect]
     Active Substance: VENETOCLAX
     Route: 048
     Dates: start: 20190110, end: 20190731
  41. NORMAL SALINE SOLUTION (0.9% SODIUM CHLORIDE) [Concomitant]
     Route: 042
     Dates: start: 20190404, end: 20190404
  42. NORMAL SALINE SOLUTION (0.9% SODIUM CHLORIDE) [Concomitant]
     Route: 042
     Dates: start: 20190613, end: 20190613
  43. NORMAL SALINE SOLUTION (0.9% SODIUM CHLORIDE) [Concomitant]
     Route: 042
     Dates: start: 20190802, end: 20190802
  44. METOPROLOL. [Concomitant]
     Active Substance: METOPROLOL
     Indication: VENTRICULAR TACHYCARDIA

REACTIONS (2)
  - Pneumonia [Recovered/Resolved]
  - Ventricular tachycardia [Not Recovered/Not Resolved]

NARRATIVE: CASE EVENT DATE: 20190629
